FAERS Safety Report 16237935 (Version 1)
Quarter: 2019Q2

REPORT INFORMATION
  Report Type: Spontaneous
  Country: SE (occurrence: SE)
  Receive Date: 20190425
  Receipt Date: 20190425
  Transmission Date: 20190711
  Serious: Yes (Hospitalization)
  Sender: FDA-Public Use
  Company Number: SE-ASTRAZENECA-2019SE59088

PATIENT
  Sex: Female

DRUGS (4)
  1. XANOR [Suspect]
     Active Substance: ALPRAZOLAM
     Route: 048
     Dates: start: 20131026, end: 20131026
  2. DIMOR [Suspect]
     Active Substance: LOPERAMIDE
     Dosage: 20.0MG UNKNOWN
     Route: 048
     Dates: start: 20131026, end: 20131026
  3. SEROQUEL [Suspect]
     Active Substance: QUETIAPINE FUMARATE
     Dosage: 100.0MG UNKNOWN
     Route: 048
     Dates: start: 20131026, end: 20131026
  4. STESOLID [Suspect]
     Active Substance: DIAZEPAM
     Dosage: 15.0MG UNKNOWN
     Route: 048
     Dates: start: 20131026, end: 20131026

REACTIONS (2)
  - Intentional self-injury [Unknown]
  - Intentional overdose [Unknown]

NARRATIVE: CASE EVENT DATE: 20131026
